FAERS Safety Report 22313662 (Version 1)
Quarter: 2023Q2

REPORT INFORMATION
  Report Type: Spontaneous
  Country: CN (occurrence: CN)
  Receive Date: 20230512
  Receipt Date: 20230512
  Transmission Date: 20230722
  Serious: Yes (Other)
  Sender: FDA-Public Use
  Company Number: CN-PFIZER INC-202300182794

PATIENT
  Age: 6 Decade
  Sex: Male

DRUGS (1)
  1. PAXLOVID [Suspect]
     Active Substance: NIRMATRELVIR\RITONAVIR
     Indication: COVID-19 treatment
     Route: 048

REACTIONS (5)
  - Dyspnoea [Unknown]
  - Suffocation feeling [Unknown]
  - Oxygen saturation decreased [Unknown]
  - Insomnia [Unknown]
  - Respiration abnormal [Unknown]
